FAERS Safety Report 21239334 (Version 1)
Quarter: 2022Q3

REPORT INFORMATION
  Report Type: Spontaneous
  Country: US (occurrence: None)
  Receive Date: 20220822
  Receipt Date: 20220822
  Transmission Date: 20221026
  Serious: No
  Sender: FDA-Public Use
  Company Number: 2022A289581

PATIENT
  Sex: Female

DRUGS (2)
  1. LYNPARZA [Suspect]
     Active Substance: OLAPARIB
     Indication: Ovarian cancer
     Dosage: 500.0MG UNKNOWN
     Route: 048
     Dates: start: 20220706
  2. AVASTIN [Concomitant]
     Active Substance: BEVACIZUMAB
     Route: 065

REACTIONS (14)
  - Malaise [Unknown]
  - Back pain [Unknown]
  - Gingival bleeding [Unknown]
  - Body tinea [Unknown]
  - Sleep disorder [Unknown]
  - Feeling abnormal [Unknown]
  - Abdominal pain [Unknown]
  - Abdominal discomfort [Unknown]
  - Myalgia [Unknown]
  - Pelvic pain [Unknown]
  - Pelvic discomfort [Unknown]
  - Hypoacusis [Unknown]
  - Rash [Unknown]
  - Off label use [Unknown]
